FAERS Safety Report 5555669-5 (Version None)
Quarter: 2007Q4

REPORT INFORMATION
  Report Type: 
  Country: None (occurrence: None)
  Receive Date: 20071213
  Receipt Date: 20071206
  Transmission Date: 20080405
  Serious: Yes (Other)
  Sender: FDA-Public Use
  Company Number: DE-ABBOTT-07P-062-0427538-00

PATIENT
  Age: 40 Year
  Sex: Female

DRUGS (7)
  1. FENOFIBRATE [Suspect]
     Indication: HYPERLIPIDAEMIA
     Dosage: NOT REPORTED
  2. FENOFIBRATE [Suspect]
     Indication: LIPODYSTROPHY ACQUIRED
  3. TENOFOVIR DISOPROXIL FUMARATE [Interacting]
     Indication: ANTIRETROVIRAL THERAPY
     Dosage: NOT REPORTED
  4. PRAVASTATIN [Interacting]
     Indication: HYPERLIPIDAEMIA
     Dosage: NOT REPORTED
  5. PRAVASTATIN [Interacting]
     Indication: LIPODYSTROPHY ACQUIRED
  6. ABACAVIR [Concomitant]
     Indication: ANTIRETROVIRAL THERAPY
     Dosage: NOT REPORTED
  7. PROTEASE INHIBITORS [Concomitant]
     Indication: ANTIRETROVIRAL THERAPY
     Dosage: NOT REPORTED

REACTIONS (3)
  - DRUG INTERACTION [None]
  - RENAL FAILURE ACUTE [None]
  - RHABDOMYOLYSIS [None]
